FAERS Safety Report 8166658-9 (Version None)
Quarter: 2012Q1

REPORT INFORMATION
  Report Type: 
  Country: None (occurrence: None)
  Receive Date: 20120227
  Receipt Date: 20120213
  Transmission Date: 20120608
  Serious: Yes (Hospitalization)
  Sender: FDA-Public Use
  Company Number: GB-MYLANLABS-2012S1003542

PATIENT
  Age: 52 Year
  Sex: Male

DRUGS (9)
  1. DILTIAZEM HCL [Suspect]
     Indication: OVERDOSE
     Dosage: 3900MG
     Route: 065
  2. NICORANDIL [Suspect]
     Indication: OVERDOSE
     Dosage: 120MG
     Route: 065
  3. ISOSORBIDE MONONITRATE [Suspect]
     Indication: OVERDOSE
     Dosage: 800MG
     Route: 065
  4. TAMSULOSIN HCL [Concomitant]
     Route: 065
  5. ASPIRIN [Concomitant]
     Route: 065
  6. CITALOPRAM HYDROBROMIDE [Concomitant]
     Route: 065
  7. RAMIPRIL [Suspect]
     Indication: OVERDOSE
     Dosage: 140MG
     Route: 065
  8. OMEPRAZOLE [Concomitant]
     Route: 065
  9. SIMVASTATIN [Concomitant]
     Route: 065

REACTIONS (4)
  - HYPOTENSION [None]
  - OVERDOSE [None]
  - SOMNOLENCE [None]
  - ANURIA [None]
